FAERS Safety Report 4685138-6 (Version None)
Quarter: 2005Q2

REPORT INFORMATION
  Report Type: 
  Country: None (occurrence: None)
  Receive Date: 20050608
  Receipt Date: 20050413
  Transmission Date: 20051028
  Serious: Yes (Life-Threatening, Hospitalization, Disabling, Other)
  Sender: FDA-Public Use
  Company Number: ES-NOVOPROD-243517

PATIENT
  Age: 30 Year
  Sex: Male
  Weight: 85 kg

DRUGS (23)
  1. NOVOSEVEN [Suspect]
     Indication: BRAIN CONTUSION
     Dosage: 40 UG/KG, QD
     Route: 042
     Dates: start: 20050410, end: 20050410
  2. NORADRENALINE [Concomitant]
     Indication: CEREBRAL PERFUSION PRESSURE DECREASED
     Dosage: 29.24 MG, QD
     Route: 042
     Dates: start: 20050410
  3. NIMBEX [Concomitant]
     Indication: PARALYSIS
     Dosage: 90 MG, QD
     Route: 042
     Dates: start: 20050410
  4. FUROSEMIDE [Concomitant]
     Indication: POLYURIA
     Dosage: 10 MG, QD
     Route: 042
     Dates: start: 20050411, end: 20050411
  5. FUROSEMIDE [Concomitant]
     Dosage: 10 MG, QD
     Route: 042
     Dates: start: 20050415
  6. NORMAL SALINE [Concomitant]
     Indication: VOLUME BLOOD DECREASED
     Dosage: 1100 ML, QD
     Route: 042
     Dates: start: 20050411, end: 20050411
  7. NORMAL SALINE [Concomitant]
     Dosage: 500 ML, QD
     Route: 042
     Dates: start: 20050411
  8. OMEPRAZOLE [Concomitant]
     Dosage: 40 MG, QD
     Route: 042
     Dates: start: 20050411
  9. METOCLOPRAMIDE [Concomitant]
     Indication: VOMITING
     Dosage: 40 MG, QD
     Route: 042
     Dates: start: 20050410
  10. MORPHINE [Concomitant]
     Indication: ANALGESIC EFFECT
     Dosage: 42 MG, QD
     Route: 042
     Dates: start: 20050410
  11. MIDAZOLAM [Concomitant]
     Indication: SEDATION
     Dosage: 380 MG, QD
     Route: 042
     Dates: start: 20050411, end: 20050416
  12. MIDAZOLAM [Concomitant]
     Dosage: 675 MG, QD
     Route: 042
     Dates: start: 20050417
  13. AK [Concomitant]
     Indication: BLOOD POTASSIUM DECREASED
     Dosage: .79 G, QD
     Route: 042
     Dates: start: 20050411
  14. PARACETAMOL [Concomitant]
     Dosage: 1 G, QD
     Route: 042
     Dates: start: 20050414, end: 20050418
  15. ALBUMIN (HUMAN) [Concomitant]
     Indication: VOLUME BLOOD DECREASED
     Dosage: 30 G, QD
     Route: 042
     Dates: start: 20050414
  16. POTASSIUM CHLORIDE [Concomitant]
     Indication: HYPOKALAEMIA
     Dosage: 670.5 MG, QD
     Route: 042
     Dates: start: 20050411, end: 20050417
  17. AMIKACIN [Concomitant]
     Indication: PNEUMONIA
     Dosage: 1 G, QD
     Route: 042
     Dates: start: 20050414
  18. VOLUVEN [Concomitant]
     Indication: VOLUME BLOOD DECREASED
     Dosage: 500 ML, QD
     Route: 042
     Dates: start: 20050411, end: 20050416
  19. VOLUVEN [Concomitant]
     Route: 042
     Dates: start: 20050417, end: 20050417
  20. AMOXICILLIN W/CLAVULANIC ACID [Concomitant]
     Dosage: 6 G, QD
     Route: 042
     Dates: start: 20050410
  21. CEFEPIME [Concomitant]
     Indication: PNEUMONIA
     Dosage: 6 G, UNK
     Route: 042
     Dates: start: 20050414
  22. VITAMIN K [Concomitant]
     Indication: COAGULOPATHY
     Dosage: 10 MG, QD
     Route: 042
     Dates: start: 20050413
  23. LACTITOL [Concomitant]
     Dosage: 20 G, QD
     Route: 042

REACTIONS (2)
  - BRAIN CONTUSION [None]
  - MYOCARDIAL ISCHAEMIA [None]
